FAERS Safety Report 4460752-1 (Version None)
Quarter: 2004Q3

REPORT INFORMATION
  Report Type: 
  Country: None (occurrence: None)
  Receive Date: 20040928
  Receipt Date: 20040728
  Transmission Date: 20050211
  Serious: No
  Sender: FDA-Public Use
  Company Number: US-GLAXOSMITHKLINE-A0520188A

PATIENT
  Sex: Male

DRUGS (4)
  1. ADVAIR DISKUS 100/50 [Suspect]
     Indication: EMPHYSEMA
     Route: 055
  2. SEREVENT [Suspect]
     Indication: EMPHYSEMA
     Route: 055
  3. ALBUTEROL [Suspect]
     Indication: EMPHYSEMA
     Route: 055
  4. ATROVENT [Suspect]
     Indication: EMPHYSEMA
     Route: 055

REACTIONS (2)
  - STOMATITIS [None]
  - THROAT IRRITATION [None]
